FAERS Safety Report 5731367-X (Version None)
Quarter: 2008Q2

REPORT INFORMATION
  Report Type: 
  Country: None (occurrence: None)
  Receive Date: 20080508
  Receipt Date: 20080506
  Transmission Date: 20081010
  Serious: Yes (Disabling, Other)
  Sender: FDA-Public Use
  Company Number: US-BRISTOL-MYERS SQUIBB COMPANY-14076095

PATIENT
  Age: 61 Year
  Sex: Female

DRUGS (4)
  1. ABILIFY [Suspect]
     Route: 048
     Dates: start: 20041001
  2. EFFEXOR [Suspect]
     Indication: DEPRESSION
     Dosage: 150MG AM AND 75MG PM. INITIATED BEFORE 2002 AND AFTER 7/07 SHE TERMINATED
     Route: 048
  3. EFFEXOR [Suspect]
     Indication: ANXIETY
     Dosage: 150MG AM AND 75MG PM. INITIATED BEFORE 2002 AND AFTER 7/07 SHE TERMINATED
     Route: 048
  4. XANAX [Concomitant]

REACTIONS (4)
  - NERVOUSNESS [None]
  - SEROTONIN SYNDROME [None]
  - VOMITING [None]
  - WEIGHT DECREASED [None]
